FAERS Safety Report 16582857 (Version 3)
Quarter: 2019Q3

REPORT INFORMATION
  Report Type: Report from Study
  Country: None (occurrence: CA)
  Receive Date: 20190717
  Receipt Date: 20190723
  Transmission Date: 20191004
  Serious: Yes (Hospitalization, Other)
  Sender: FDA-Public Use
  Company Number: CA-ABBVIE-19K-028-2854381-00

PATIENT
  Sex: Male

DRUGS (1)
  1. HUMIRA [Suspect]
     Active Substance: ADALIMUMAB
     Indication: ANKYLOSING SPONDYLITIS
     Route: 058
     Dates: start: 20120811

REACTIONS (3)
  - Poor peripheral circulation [Recovered/Resolved]
  - Foot amputation [Recovered/Resolved]
  - Gangrene [Not Recovered/Not Resolved]

NARRATIVE: CASE EVENT DATE: 2019
